FAERS Safety Report 6159885-3 (Version None)
Quarter: 2009Q2

REPORT INFORMATION
  Report Type: 
  Country: None (occurrence: None)
  Receive Date: 20090420
  Receipt Date: 20090415
  Transmission Date: 20091009
  Serious: Yes (Death, Other)
  Sender: FDA-Public Use
  Company Number: PHHY2009BR14152

PATIENT
  Age: 65 Year
  Sex: Male

DRUGS (1)
  1. FORASEQ [Suspect]

REACTIONS (7)
  - CARDIAC DISORDER [None]
  - CATHETER PLACEMENT [None]
  - DEATH [None]
  - DYSPHAGIA [None]
  - INFARCTION [None]
  - OESOPHAGEAL CARCINOMA [None]
  - WEIGHT DECREASED [None]
